FAERS Safety Report 24273122 (Version 3)
Quarter: 2025Q1

REPORT INFORMATION
  Report Type: Spontaneous
  Country: CA (occurrence: CA)
  Receive Date: 20240902
  Receipt Date: 20250210
  Transmission Date: 20250409
  Serious: Yes (Other)
  Sender: ROCHE
  Company Number: CA-ROCHE-10000063280

PATIENT
  Age: 77 Year
  Sex: Male

DRUGS (7)
  1. RITUXIMAB [Suspect]
     Active Substance: RITUXIMAB
     Indication: Rheumatoid arthritis
     Route: 042
  2. RITUXIMAB [Suspect]
     Active Substance: RITUXIMAB
     Route: 042
  3. METHYLPREDNISOLONE [Concomitant]
     Active Substance: METHYLPREDNISOLONE
     Route: 042
  4. DIPHENHYDRAMINE HYDROCHLORIDE [Concomitant]
     Active Substance: DIPHENHYDRAMINE HYDROCHLORIDE
     Route: 048
  5. ACETAMINOPHEN [Concomitant]
     Active Substance: ACETAMINOPHEN
     Route: 048
  6. METHYLPREDNISOLONE SODIUM SUCCINATE [Concomitant]
     Active Substance: METHYLPREDNISOLONE SODIUM SUCCINATE
     Route: 042
  7. METHOTREXATE [Concomitant]
     Active Substance: METHOTREXATE
     Route: 065

REACTIONS (12)
  - Hypertension [Recovered/Resolved]
  - Inappropriate schedule of product administration [Unknown]
  - Infusion site induration [Recovered/Resolved]
  - Infusion site pain [Recovered/Resolved]
  - Joint stiffness [Recovered/Resolved]
  - Renal haemorrhage [Recovered/Resolved]
  - Synovitis [Recovered/Resolved]
  - Pain in extremity [Recovered/Resolved]
  - Circumstance or information capable of leading to device use error [Recovered/Resolved]
  - General physical health deterioration [Recovered/Resolved]
  - Rheumatoid arthritis [Recovered/Resolved]
  - Gait disturbance [Recovered/Resolved]
